FAERS Safety Report 9187737 (Version 2)
Quarter: 2013Q2

REPORT INFORMATION
  Report Type: Spontaneous
  Country: US (occurrence: US)
  Receive Date: 20130325
  Receipt Date: 20130508
  Transmission Date: 20140414
  Serious: Yes (Death)
  Sender: FDA-Public Use
  Company Number: PHEH2013US006761

PATIENT
  Age: 63 Year
  Sex: Female

DRUGS (5)
  1. AFINITOR [Suspect]
     Dosage: 10 MG, QD
     Route: 048
  2. SINGULAIR [Concomitant]
     Dosage: 10 MG, UNK
  3. CYPROHEPTADINE [Concomitant]
     Dosage: 4 MG, UNK
  4. NEXIUM//ESOMEPRAZOLE MAGNESIUM [Concomitant]
     Dosage: 20 MG, UNK
  5. KLOR-CON [Concomitant]
     Dosage: 10 MEQ, UNK

REACTIONS (2)
  - Neoplasm [Fatal]
  - Malignant neoplasm progression [Fatal]
